FAERS Safety Report 10049928 (Version 1)
Quarter: 2014Q1

REPORT INFORMATION
  Report Type: Spontaneous
  Country: US (occurrence: None)
  Receive Date: 20140331
  Receipt Date: 20140331
  Transmission Date: 20141002
  Serious: No
  Sender: FDA-Public Use
  Company Number: None

PATIENT
  Age: 33 Year
  Sex: Male
  Weight: 67.7 kg

DRUGS (2)
  1. ZOFRAN 4 MG GLAXCO SMITH KLINE [Suspect]
     Indication: VOMITING
     Dosage: 4 MG ONCE INTRAVENOUS
     Route: 042
     Dates: start: 20140329, end: 20140329
  2. ETOH [Concomitant]

REACTIONS (2)
  - Respiratory distress [None]
  - Uveitis [None]
